FAERS Safety Report 17244859 (Version 2)
Quarter: 2020Q1

REPORT INFORMATION
  Report Type: Spontaneous
  Country: US (occurrence: US)
  Receive Date: 20200108
  Receipt Date: 20200206
  Transmission Date: 20200409
  Serious: Yes (Other)
  Sender: FDA-Public Use
  Company Number: US-ABBVIE-19K-163-2933230-00

PATIENT
  Age: 30 Year
  Sex: Male

DRUGS (2)
  1. AUGMENTIN [Concomitant]
     Active Substance: AMOXICILLIN\CLAVULANATE POTASSIUM
     Indication: PNEUMONIA
  2. HUMIRA [Suspect]
     Active Substance: ADALIMUMAB
     Indication: CROHN^S DISEASE
     Dosage: ON 2 ND OCT 2019 80 MG AND 16 TH OCT 2019 EVERY OTHER WEEK AND ONGOING
     Route: 058
     Dates: start: 20190918, end: 20190918

REACTIONS (2)
  - Injection site haemorrhage [Recovered/Resolved]
  - Brain abscess [Unknown]

NARRATIVE: CASE EVENT DATE: 20190918
